FAERS Safety Report 10406116 (Version 1)
Quarter: 2014Q3

REPORT INFORMATION
  Report Type: Spontaneous
  Country: JP (occurrence: JP)
  Receive Date: 20140825
  Receipt Date: 20140825
  Transmission Date: 20150326
  Serious: Yes (Other)
  Sender: FDA-Public Use
  Company Number: JP-PFIZER INC-2014231978

PATIENT
  Age: 16 Year
  Sex: Male

DRUGS (7)
  1. CEFEPIME HYDROCHLORIDE. [Concomitant]
     Active Substance: CEFEPIME HYDROCHLORIDE
     Dosage: 4 G, DAILY
  2. VANCOMYCIN HYDROCHLORIDE. [Concomitant]
     Active Substance: VANCOMYCIN HYDROCHLORIDE
     Dosage: 2 G, DAILY
  3. IMMUNOGLOBULIN [Concomitant]
     Active Substance: HUMAN IMMUNOGLOBULIN G
     Dosage: 5 G, DAILY
  4. SOLU-MEDROL [Suspect]
     Active Substance: METHYLPREDNISOLONE SODIUM SUCCINATE
     Dosage: 1 G, DAILY
     Route: 041
  5. PREDNISOLON [Concomitant]
     Active Substance: PREDNISOLONE
     Dosage: 30 MG, DAILY
     Route: 048
  6. MEROPENEM TRIHYDRATE [Concomitant]
     Active Substance: MEROPENEM
     Dosage: 2 G, DAILY
  7. SOLU-MEDROL [Suspect]
     Active Substance: METHYLPREDNISOLONE SODIUM SUCCINATE
     Dosage: 60 MG, DAILY
     Route: 041

REACTIONS (1)
  - Histiocytosis haematophagic [Recovering/Resolving]
